FAERS Safety Report 8912663 (Version 3)
Quarter: 2013Q2

REPORT INFORMATION
  Report Type: Spontaneous
  Country: DE (occurrence: DE)
  Receive Date: 20121116
  Receipt Date: 20130423
  Transmission Date: 20140414
  Serious: Yes (Death, Other)
  Sender: FDA-Public Use
  Company Number: DE-ROCHE-1155535

PATIENT
  Age: 42 Year
  Sex: Female
  Weight: 67 kg

DRUGS (7)
  1. AVASTIN [Suspect]
     Indication: OVARIAN CANCER
     Route: 042
     Dates: start: 20120830, end: 20121203
  2. PACLITAXEL [Suspect]
     Indication: OVARIAN CANCER
     Route: 042
     Dates: start: 20120809, end: 20121203
  3. CARBOPLATIN [Suspect]
     Indication: OVARIAN CANCER
     Route: 042
     Dates: start: 20120809, end: 20121203
  4. DEXAMETHASONE [Concomitant]
     Route: 042
     Dates: start: 20120809, end: 20121203
  5. RANITIDIN [Concomitant]
     Route: 042
     Dates: start: 20120809, end: 20121203
  6. FENISTIL [Concomitant]
     Route: 042
     Dates: start: 20120809, end: 20121203
  7. ONDANSETRON [Concomitant]
     Route: 042
     Dates: start: 20120809, end: 20121203

REACTIONS (5)
  - Disease progression [Fatal]
  - Bone marrow toxicity [Unknown]
  - Thrombocytopenia [Unknown]
  - Pancytopenia [Recovered/Resolved]
  - Gastrointestinal disorder [Unknown]
